FAERS Safety Report 24063948 (Version 2)
Quarter: 2024Q3

REPORT INFORMATION
  Report Type: Spontaneous
  Country: GB (occurrence: GB)
  Receive Date: 20240709
  Receipt Date: 20240709
  Transmission Date: 20241017
  Serious: Yes (Other)
  Sender: STRIDES
  Company Number: GB-STRIDES ARCOLAB LIMITED-2024SP008029

PATIENT

DRUGS (8)
  1. PREDNISOLONE [Suspect]
     Active Substance: PREDNISOLONE
     Indication: Lymphoma
     Dosage: 20 MILLIGRAM, EVERY MORNING (AFTER BREAKFAST) (INDUCTION)
     Route: 048
  2. PREDNISOLONE [Suspect]
     Active Substance: PREDNISOLONE
     Indication: Neoplasm recurrence
     Dosage: UNK, THRICE  A WEEK (MAINTENANCE DOSE)
     Route: 065
  3. ETOPOSIDE [Suspect]
     Active Substance: ETOPOSIDE
     Indication: Lymphoma
     Dosage: 50 MILLIGRAM (AFTER EVENING MEAL) (INDUCTION)
     Route: 048
  4. ETOPOSIDE [Suspect]
     Active Substance: ETOPOSIDE
     Indication: Neoplasm recurrence
     Dosage: UNK, THRICE  A WEEK (MAINTENANCE DOSE)
     Route: 065
  5. CYCLOPHOSPHAMIDE [Suspect]
     Active Substance: CYCLOPHOSPHAMIDE
     Indication: Lymphoma
     Dosage: 50 MILLIGRAM (AFTER LUNCH) (INDUCTION)
     Route: 048
  6. CYCLOPHOSPHAMIDE [Suspect]
     Active Substance: CYCLOPHOSPHAMIDE
     Indication: Neoplasm recurrence
     Dosage: UNK, THRICE  A WEEK (MAINTENANCE DOSE)
     Route: 065
  7. PROCARBAZINE [Suspect]
     Active Substance: PROCARBAZINE
     Indication: Lymphoma
     Dosage: 50 MILLIGRAM, AT BED TIME (INDUCTION)
     Route: 048
  8. PROCARBAZINE [Suspect]
     Active Substance: PROCARBAZINE
     Indication: Neoplasm recurrence
     Dosage: UNK, THRICE  A WEEK (MAINTENANCE DOSE)
     Route: 065

REACTIONS (1)
  - Transient ischaemic attack [Unknown]
